FAERS Safety Report 9419065 (Version 4)
Quarter: 2014Q3

REPORT INFORMATION
  Report Type: Spontaneous
  Country: MX (occurrence: MX)
  Receive Date: 20130725
  Receipt Date: 20140713
  Transmission Date: 20150326
  Serious: Yes (Hospitalization, Other)
  Sender: FDA-Public Use
  Company Number: PHHY2013MX078667

PATIENT
  Age: 54 Year
  Sex: Female

DRUGS (5)
  1. EZETIMIBE AND SIMVASTATIN [Concomitant]
     Active Substance: EZETIMIBE\SIMVASTATIN
     Indication: BLOOD CHOLESTEROL
     Dosage: 1 DF DAILY
  2. EXFORGE [Suspect]
     Active Substance: AMLODIPINE BESYLATE\VALSARTAN
     Dosage: 320/10 MG, DAILY
     Route: 048
     Dates: start: 201212, end: 20130702
  3. EXFORGE [Suspect]
     Active Substance: AMLODIPINE BESYLATE\VALSARTAN
     Indication: HYPERTENSION
     Dosage: 2 DF (160/5MG), DAILY
     Route: 048
     Dates: end: 201212
  4. FLAVIX [Concomitant]
     Indication: CARDIOVASCULAR DISORDER
     Dosage: 1 DF DAILY
  5. GALVUS MET [Concomitant]
     Active Substance: METFORMIN HYDROCHLORIDE\VILDAGLIPTIN
     Indication: DIABETES MELLITUS
     Dosage: 2 DF DAILY
     Dates: start: 2009

REACTIONS (6)
  - Blood pressure increased [Recovered/Resolved]
  - Renal disorder [Recovered/Resolved]
  - Visual impairment [Recovered/Resolved]
  - Drug ineffective [Unknown]
  - Peripheral vascular disorder [Recovered/Resolved]
  - Arterial occlusive disease [Recovered/Resolved]

NARRATIVE: CASE EVENT DATE: 201206
